FAERS Safety Report 8623135-6 (Version None)
Quarter: 2012Q3

REPORT INFORMATION
  Report Type: 
  Country: None (occurrence: None)
  Receive Date: 20120827
  Receipt Date: 20120815
  Transmission Date: 20120928
  Serious: Yes (Other)
  Sender: FDA-Public Use
  Company Number: JP-JNJFOC-20120801368

PATIENT

DRUGS (2)
  1. TOPIRAMATE [Suspect]
     Indication: EPILEPSY
     Dosage: SLOW TITRATION:50 MG/DAY TO 50 MG UPTO 400 MG.  RAPID TITRATION:100 MG/DAY TO 200 MG,400 MG WEEKLY
     Route: 048
  2. ANTIEPILEPTIC MEDICATION [Concomitant]
     Indication: EPILEPSY
     Route: 065

REACTIONS (7)
  - MENTAL DISORDER [None]
  - WEIGHT DECREASED [None]
  - DIZZINESS [None]
  - SOMNOLENCE [None]
  - BLOOD BICARBONATE DECREASED [None]
  - DECREASED APPETITE [None]
  - NERVOUS SYSTEM DISORDER [None]
